FAERS Safety Report 25062053 (Version 1)
Quarter: 2025Q1

REPORT INFORMATION
  Report Type: Report from Study
  Country: IN (occurrence: IN)
  Receive Date: 20250311
  Receipt Date: 20250311
  Transmission Date: 20250409
  Serious: Yes (Death)
  Sender: ROCHE
  Company Number: IN-ROCHE-10000052548

PATIENT
  Age: 60 Year
  Sex: Male

DRUGS (2)
  1. TECENTRIQ [Suspect]
     Active Substance: ATEZOLIZUMAB
     Indication: Small cell lung cancer
     Route: 042
     Dates: start: 20240601
  2. TECENTRIQ [Suspect]
     Active Substance: ATEZOLIZUMAB
     Route: 042
     Dates: start: 20240601

REACTIONS (5)
  - Platelet count decreased [Unknown]
  - Vomiting [Unknown]
  - Nausea [Unknown]
  - Mental impairment [Unknown]
  - Respiratory arrest [Fatal]

NARRATIVE: CASE EVENT DATE: 20241215
